FAERS Safety Report 14265763 (Version 2)
Quarter: 2019Q1

REPORT INFORMATION
  Report Type: Spontaneous
  Country: ES (occurrence: ES)
  Receive Date: 20171208
  Receipt Date: 20190327
  Transmission Date: 20190417
  Serious: Yes (Other)
  Sender: FDA-Public Use
  Company Number: ES-TEVA-2017-ES-832796

PATIENT
  Age: 78 Year
  Sex: Female

DRUGS (7)
  1. LEVOFLOXACIN. [Suspect]
     Active Substance: LEVOFLOXACIN
     Indication: MENINGOENCEPHALITIS HERPETIC
     Dosage: 500 MILLIGRAM DAILY; 500 MG, NEXT 14 DAY
     Route: 042
  2. PREDNISONE. [Concomitant]
     Active Substance: PREDNISONE
     Route: 065
  3. ENOXAPARIN [Concomitant]
     Active Substance: ENOXAPARIN
     Route: 065
  4. SERTRALINE [Concomitant]
     Active Substance: SERTRALINE HYDROCHLORIDE
     Route: 065
  5. LEVOFLOXACIN. [Suspect]
     Active Substance: LEVOFLOXACIN
     Dosage: 1ST DAY
     Route: 042
  6. ACICLOVIR [Suspect]
     Active Substance: ACYCLOVIR
     Indication: ENCEPHALITIS AUTOIMMUNE
     Route: 042
  7. METHYLPREDNISOLONE. [Concomitant]
     Active Substance: METHYLPREDNISOLONE
     Route: 065

REACTIONS (1)
  - Factor XIII deficiency [Recovered/Resolved]
